FAERS Safety Report 10183389 (Version 1)
Quarter: 2014Q2

REPORT INFORMATION
  Report Type: Spontaneous
  Country: US (occurrence: US)
  Receive Date: 20140520
  Receipt Date: 20140520
  Transmission Date: 20141212
  Serious: No
  Sender: FDA-Public Use
  Company Number: US-B.I. PHARMACEUTICALS,INC./RIDGEFIELD-2014-BI-20620BP

PATIENT
  Age: 78 Year
  Sex: Female

DRUGS (10)
  1. ZANTAC 150 (RANITIDINE HYDROCHLORIDE) [Suspect]
     Indication: DYSPEPSIA
     Route: 048
     Dates: start: 20140507
  2. ZANTAC 150 (RANITIDINE HYDROCHLORIDE) [Suspect]
     Indication: DYSPEPSIA
  3. METOPROLOL [Concomitant]
     Indication: HEART RATE INCREASED
     Dosage: 50 MG
     Route: 048
  4. LASIX [Concomitant]
     Indication: JOINT SWELLING
     Dosage: 40 MG
     Route: 048
  5. ZESTRIL [Concomitant]
     Indication: HYPERTENSION
     Dosage: 10 MG
     Route: 048
  6. SYNTHROID [Concomitant]
     Indication: HYPOTHYROIDISM
     Dosage: 175 MCG
     Route: 048
  7. GAVISCON [Concomitant]
     Route: 048
  8. MULTIVITAMIN [Concomitant]
     Route: 065
  9. VITAMIN B12 [Concomitant]
     Route: 048
  10. MULTIVITAMIN [Concomitant]
     Route: 065

REACTIONS (2)
  - Abdominal distension [Recovered/Resolved]
  - Eructation [Recovered/Resolved]
